FAERS Safety Report 9394015 (Version 1)
Quarter: 2013Q3

REPORT INFORMATION
  Report Type: Spontaneous
  Country: US (occurrence: US)
  Receive Date: 20130710
  Receipt Date: 20130710
  Transmission Date: 20140515
  Serious: Yes (Other)
  Sender: FDA-Public Use
  Company Number: US-009507513-1307USA002047

PATIENT
  Sex: Male

DRUGS (1)
  1. TINACTIN JOCK ITCH POWDER SPRAY [Suspect]
     Indication: HYPERHIDROSIS
     Dosage: UNK UNK, BID
     Route: 061

REACTIONS (2)
  - Cardiac failure congestive [Unknown]
  - Product expiration date issue [Recovered/Resolved]
